FAERS Safety Report 15591597 (Version 1)
Quarter: 2018Q4

REPORT INFORMATION
  Report Type: Spontaneous
  Country: US (occurrence: US)
  Receive Date: 20181106
  Receipt Date: 20181106
  Transmission Date: 20190205
  Serious: No
  Sender: FDA-Public Use
  Company Number: US-PFIZER INC-2018429439

PATIENT
  Age: 53 Year
  Sex: Male

DRUGS (1)
  1. GENOTROPIN [Suspect]
     Active Substance: SOMATROPIN
     Indication: HYPOGONADISM
     Dosage: 0.4 MG, DAILY

REACTIONS (4)
  - Lethargy [Unknown]
  - Fatigue [Unknown]
  - Product use in unapproved indication [Unknown]
  - Muscle atrophy [Unknown]
